FAERS Safety Report 4588890-3 (Version None)
Quarter: 2005Q1

REPORT INFORMATION
  Report Type: 
  Country: None (occurrence: None)
  Receive Date: 20050216
  Receipt Date: 20050127
  Transmission Date: 20050727
  Serious: Yes (Hospitalization)
  Sender: FDA-Public Use
  Company Number: DSA_25768_2005

PATIENT
  Age: 42 Year
  Sex: Male
  Weight: 70 kg

DRUGS (4)
  1. ATIVAN [Suspect]
     Indication: AGITATION
     Dosage: DF
     Dates: start: 20050102
  2. MORPHINE [Suspect]
     Indication: AGITATION
     Dosage: DF
     Dates: start: 20050102
  3. DILAUDID [Suspect]
     Indication: AGITATION
     Dosage: DF
     Dates: start: 20050102
  4. VERSED [Suspect]
     Dosage: DF
     Dates: start: 20050102

REACTIONS (2)
  - DELIRIUM [None]
  - DRUG INEFFECTIVE [None]
